FAERS Safety Report 10464144 (Version 1)
Quarter: 2014Q3

REPORT INFORMATION
  Report Type: Spontaneous
  Country: US (occurrence: None)
  Receive Date: 20140918
  Receipt Date: 20140918
  Transmission Date: 20150326
  Serious: Yes (Hospitalization)
  Sender: FDA-Public Use
  Company Number: None

PATIENT
  Age: 57 Year
  Sex: Female
  Weight: 106 kg

DRUGS (12)
  1. VERAPAMIL [Concomitant]
     Active Substance: VERAPAMIL HYDROCHLORIDE
  2. VITAMIN D [Concomitant]
     Active Substance: CHOLECALCIFEROL
  3. ROSUVASTATIN [Concomitant]
     Active Substance: ROSUVASTATIN
  4. LEVETIRACETAM. [Suspect]
     Active Substance: LEVETIRACETAM
     Indication: CONVULSION
     Dosage: PRIOR TO ADMISSION 1500 MG BID ORAL
     Route: 048
  5. OLANZAPINE. [Concomitant]
     Active Substance: OLANZAPINE
  6. ZONISAMIDE. [Concomitant]
     Active Substance: ZONISAMIDE
  7. SERTRALINE [Concomitant]
     Active Substance: SERTRALINE HYDROCHLORIDE
  8. PANTOPRAZOLE [Concomitant]
     Active Substance: PANTOPRAZOLE SODIUM
  9. LISINOPRIL. [Concomitant]
     Active Substance: LISINOPRIL
  10. ALENDRONATE [Concomitant]
     Active Substance: ALENDRONATE SODIUM
  11. MULTIVITAMIN [Concomitant]
     Active Substance: VITAMINS
  12. CALCIUM + VITAMIN D [Concomitant]
     Active Substance: CALCIUM\VITAMIN D

REACTIONS (5)
  - Cellulitis [None]
  - Toxicity to various agents [None]
  - Mental status changes [None]
  - Lethargy [None]
  - Sinus arrest [None]

NARRATIVE: CASE EVENT DATE: 20140422
